FAERS Safety Report 24847080 (Version 2)
Quarter: 2025Q3

REPORT INFORMATION
  Report Type: Report from Study
  Country: CA (occurrence: CA)
  Receive Date: 20250115
  Receipt Date: 20250710
  Transmission Date: 20251020
  Serious: Yes (Hospitalization, Other)
  Sender: ABBVIE
  Company Number: CA-ABBVIE-6083035

PATIENT
  Age: 57 Year
  Sex: Male

DRUGS (1)
  1. RINVOQ [Suspect]
     Active Substance: UPADACITINIB
     Indication: Crohn^s disease
     Route: 048
     Dates: start: 20240726

REACTIONS (9)
  - Spinal decompression [Unknown]
  - Acne [Unknown]
  - Abdominal distension [Unknown]
  - Diarrhoea [Unknown]
  - Back disorder [Unknown]
  - Defaecation urgency [Unknown]
  - Lumbar radiculopathy [Unknown]
  - Muscle enzyme increased [Unknown]
  - Cauda equina syndrome [Unknown]

NARRATIVE: CASE EVENT DATE: 20240801
